FAERS Safety Report 22161406 (Version 2)
Quarter: 2023Q2

REPORT INFORMATION
  Report Type: Spontaneous
  Country: KR (occurrence: KR)
  Receive Date: 20230331
  Receipt Date: 20230412
  Transmission Date: 20230722
  Serious: Yes (Other)
  Sender: FDA-Public Use
  Company Number: KR-BoehringerIngelheim-2023-BI-228752

PATIENT
  Age: 87 Year
  Sex: Female
  Weight: 45 kg

DRUGS (5)
  1. PRADAXA [Suspect]
     Active Substance: DABIGATRAN ETEXILATE MESYLATE
     Indication: Product used for unknown indication
     Route: 048
     Dates: start: 202110, end: 20220419
  2. PRADAXA [Suspect]
     Active Substance: DABIGATRAN ETEXILATE MESYLATE
     Route: 048
     Dates: start: 20220504, end: 20220517
  3. Ginexin F [Concomitant]
     Indication: Product used for unknown indication
     Route: 048
  4. GABAPENTIN [Concomitant]
     Active Substance: GABAPENTIN
     Indication: Product used for unknown indication
     Route: 048
  5. OXYGEN [Concomitant]
     Active Substance: OXYGEN
     Indication: Product used for unknown indication

REACTIONS (7)
  - Cerebral infarction [Unknown]
  - Coma [Unknown]
  - Hemiplegia [Unknown]
  - Haematuria [Unknown]
  - Haematuria [Unknown]
  - Internal haemorrhage [Unknown]
  - Dysarthria [Unknown]

NARRATIVE: CASE EVENT DATE: 20220416
